FAERS Safety Report 6864332-X (Version None)
Quarter: 2010Q3

REPORT INFORMATION
  Report Type: 
  Country: None (occurrence: None)
  Receive Date: 20100721
  Receipt Date: 20080602
  Transmission Date: 20110219
  Serious: No
  Sender: FDA-Public Use
  Company Number: US-PFIZER INC-2008026886

PATIENT
  Sex: Female
  Weight: 109.1 kg

DRUGS (28)
  1. CHANTIX [Suspect]
     Indication: SMOKING CESSATION THERAPY
     Dates: start: 20070201
  2. CHANTIX [Suspect]
     Indication: BRONCHITIS CHRONIC
  3. CHANTIX [Suspect]
     Indication: NICOTINE DEPENDENCE
  4. PERCOCET [Concomitant]
  5. OXYCONTIN [Concomitant]
  6. ULTRAM [Concomitant]
  7. SPIRIVA [Concomitant]
  8. SYMBICORT [Concomitant]
  9. ALBUTEROL [Concomitant]
  10. ALBUTEROL [Concomitant]
  11. EFFEXOR [Concomitant]
  12. SEROQUEL [Concomitant]
  13. VALIUM [Concomitant]
  14. ARTHROTEC [Concomitant]
  15. ACETYLSALICYLIC ACID [Concomitant]
  16. ESTRATEST [Concomitant]
  17. SYNTHROID [Concomitant]
  18. METFORMIN [Concomitant]
  19. LIPITOR [Concomitant]
  20. MACROGOL [Concomitant]
  21. PREVACID [Concomitant]
  22. BENTYL [Concomitant]
  23. ZANTAC [Concomitant]
  24. AMITIZA [Concomitant]
  25. MONTELUKAST SODIUM [Concomitant]
  26. CLARINEX [Concomitant]
  27. NASONEX [Concomitant]
  28. DIFLUCAN [Concomitant]

REACTIONS (7)
  - ABNORMAL DREAMS [None]
  - AMNESIA [None]
  - DISTURBANCE IN ATTENTION [None]
  - SKIN DISORDER [None]
  - UNEVALUABLE EVENT [None]
  - WEIGHT DECREASED [None]
  - WEIGHT INCREASED [None]
